FAERS Safety Report 25765022 (Version 1)
Quarter: 2025Q3

REPORT INFORMATION
  Report Type: Spontaneous
  Country: US (occurrence: US)
  Receive Date: 20250905
  Receipt Date: 20250905
  Transmission Date: 20251021
  Serious: No
  Sender: Kenvue
  Company Number: US-KENVUE-20250804752

PATIENT
  Sex: Female

DRUGS (1)
  1. MOTRIN INFANTS [Suspect]
     Active Substance: IBUPROFEN
     Indication: Teething
     Dosage: 1.25 MILLILITER, ONCE A DAY (GIVEN IT TO HER EVERY SIX HOURS)
     Route: 065
     Dates: start: 20250804

REACTIONS (1)
  - Insomnia [Unknown]
